FAERS Safety Report 10201724 (Version 2)
Quarter: 2014Q2

REPORT INFORMATION
  Report Type: Spontaneous
  Country: US (occurrence: US)
  Receive Date: 20140528
  Receipt Date: 20140528
  Transmission Date: 20141212
  Serious: No
  Sender: FDA-Public Use
  Company Number: US-BRISTOL-MYERS SQUIBB COMPANY-19007384

PATIENT
  Age: 57 Year
  Sex: Female
  Weight: 121.54 kg

DRUGS (5)
  1. METFORMIN HCL [Suspect]
     Indication: TYPE 2 DIABETES MELLITUS
     Route: 048
     Dates: start: 20130506, end: 20130523
  2. LEVOTHYROXINE [Concomitant]
     Dosage: 1DF: 175MCG/150MG
  3. BYSTOLIC [Concomitant]
  4. MICARDIS HCT [Concomitant]
     Dosage: 1DF: 20/25 MG
  5. NASONEX [Concomitant]

REACTIONS (3)
  - Nausea [Recovered/Resolved]
  - Pain in extremity [Recovered/Resolved]
  - Fatigue [Recovered/Resolved]
